FAERS Safety Report 5197070-2 (Version None)
Quarter: 2006Q4

REPORT INFORMATION
  Report Type: 
  Country: None (occurrence: None)
  Receive Date: 20061227
  Receipt Date: 20061128
  Transmission Date: 20070319
  Serious: Yes (Other)
  Sender: FDA-Public Use
  Company Number: 2006154526

PATIENT
  Sex: Female

DRUGS (1)
  1. LYRICA [Suspect]
     Indication: PETIT MAL EPILEPSY

REACTIONS (4)
  - AMNESIA [None]
  - DYSPHEMIA [None]
  - FATIGUE [None]
  - WEIGHT INCREASED [None]
